FAERS Safety Report 10029684 (Version 1)
Quarter: 2014Q1

REPORT INFORMATION
  Report Type: Spontaneous
  Country: US (occurrence: None)
  Receive Date: 20140321
  Receipt Date: 20140321
  Transmission Date: 20141002
  Serious: Yes (Other)
  Sender: FDA-Public Use
  Company Number: None

PATIENT
  Age: 64 Year
  Sex: Female
  Weight: 90.72 kg

DRUGS (1)
  1. LIPITOR [Suspect]
     Indication: LOW DENSITY LIPOPROTEIN INCREASED
     Dosage: 3-4 MONTHS 1 PILL ONCE DAILY TAKEN BY MOUTH
     Route: 048

REACTIONS (3)
  - Pain in extremity [None]
  - Gait disturbance [None]
  - Myalgia [None]
